FAERS Safety Report 26147129 (Version 3)
Quarter: 2025Q4

REPORT INFORMATION
  Report Type: Spontaneous
  Country: AU (occurrence: AU)
  Receive Date: 20251211
  Receipt Date: 20251221
  Transmission Date: 20260117
  Serious: Yes (Hospitalization, Other)
  Sender: MYLAN
  Company Number: AU-MYLANLABS-2025M1082583

PATIENT
  Age: 49 Year
  Sex: Female

DRUGS (13)
  1. CLOZARIL [Suspect]
     Active Substance: CLOZAPINE
     Indication: Schizophrenia
     Dosage: UNK
     Route: 061
     Dates: start: 20191022, end: 20250925
  2. CLOZARIL [Suspect]
     Active Substance: CLOZAPINE
     Indication: Schizoaffective disorder
  3. LITHIUM [Concomitant]
     Active Substance: LITHIUM
     Dosage: 225 MILLIGRAM, AM (MORNING)
     Dates: end: 2025
  4. LITHIUM [Concomitant]
     Active Substance: LITHIUM
     Dosage: 990 MILLIGRAM, PM (NIGHT)
  5. LITHIUM [Concomitant]
     Active Substance: LITHIUM
     Dosage: UNK, BID (LITHIUM 250MG MANE + 1G NOCTE)
     Dates: end: 2025
  6. AMISULPRIDE [Concomitant]
     Active Substance: AMISULPRIDE
     Dosage: UNK, AM (MORNING DOSE)
  7. AMISULPRIDE [Concomitant]
     Active Substance: AMISULPRIDE
     Dosage: UNK, QD (UP TO 800MG TOTAL DAILY)
  8. ARIPIPRAZOLE [Concomitant]
     Active Substance: ARIPIPRAZOLE
     Dosage: UNK, QD (UP TO 30MG TOTAL DAILY)
  9. RISPERIDONE [Concomitant]
     Active Substance: RISPERIDONE
     Dosage: UNK, QD (UP TO 4MG TOTAL DAILY)
  10. CHLORPROMAZINE [Concomitant]
     Active Substance: CHLORPROMAZINE
     Dosage: UNK, QD (UP TO 300MG TOTAL DAILY)
  11. QUETIAPINE [Concomitant]
     Active Substance: QUETIAPINE
     Indication: Anxiety
     Dosage: UNK, QD (UP TO 400MG TOTAL DAILY)
  12. OLANZAPINE [Concomitant]
     Active Substance: OLANZAPINE
     Dosage: UNK, QD (PRN - UP TO 30MG TOTAL DAILY)
  13. VALPROATE [Concomitant]
     Active Substance: VALPROIC ACID
     Dosage: UNK, BID (VALPROATE 1G MANE + 1.5G NOCTE)

REACTIONS (11)
  - Bipolar disorder [Unknown]
  - Neutropenia [Recovered/Resolved]
  - White blood cell count decreased [Recovered/Resolved]
  - Dry throat [Unknown]
  - Lethargy [Unknown]
  - Viral infection [Unknown]
  - Iron deficiency anaemia [Unknown]
  - Abdominal pain [Unknown]
  - Rhinitis [Unknown]
  - Blood test abnormal [Unknown]
  - White blood cell count increased [Recovered/Resolved]

NARRATIVE: CASE EVENT DATE: 20250923
